FAERS Safety Report 10009586 (Version 1)
Quarter: 2014Q1

REPORT INFORMATION
  Report Type: Spontaneous
  Country: US (occurrence: US)
  Receive Date: 20140312
  Receipt Date: 20140312
  Transmission Date: 20141002
  Serious: No
  Sender: FDA-Public Use
  Company Number: US-INCYTE CORPORATION-2012IN001721

PATIENT
  Sex: Male

DRUGS (5)
  1. JAKAFI [Suspect]
     Dosage: 20 MG, BID
     Route: 048
  2. JAKAFI [Suspect]
     Dosage: DOSE DECREASED (UNSPECIFIED)
     Route: 048
  3. LISINOPRIL [Concomitant]
     Dosage: 10 MG, UNK
  4. SIMVASTATIN [Concomitant]
     Dosage: 10 UNK, UNK
  5. COMBIVENT [Concomitant]

REACTIONS (2)
  - Pain in extremity [Unknown]
  - Arthralgia [Unknown]
